FAERS Safety Report 18047722 (Version 1)
Quarter: 2020Q3

REPORT INFORMATION
  Report Type: Spontaneous
  Country: RU (occurrence: RU)
  Receive Date: 20200721
  Receipt Date: 20200721
  Transmission Date: 20201103
  Serious: Yes (Other)
  Sender: FDA-Public Use
  Company Number: RU-009507513-2007RUS007646

PATIENT
  Age: 24 Year
  Sex: Female

DRUGS (7)
  1. DESLORATADINE. [Suspect]
     Active Substance: DESLORATADINE
     Indication: SYSTEMIC LUPUS ERYTHEMATOSUS
     Dosage: 5 MG, QD
     Dates: start: 2018
  2. MAGNESIUM GLUCONATE [Concomitant]
     Active Substance: MAGNESIUM GLUCONATE
     Dosage: 2 DF, TID
     Dates: start: 2018
  3. ZINC (UNSPECIFIED) [Concomitant]
     Active Substance: ZINC
     Dosage: UNK
     Dates: start: 2018
  4. BELODERM [Concomitant]
     Active Substance: BETAMETHASONE DIPROPIONATE
     Dosage: UNK
     Dates: start: 2018
  5. DIPROSPAN (BETAMETHASONE DIPROPIONATE) [Concomitant]
     Dosage: UNK
     Route: 030
     Dates: start: 2018
  6. CALCIUM GLUCONATE. [Concomitant]
     Active Substance: CALCIUM GLUCONATE
     Dosage: 2 DF, TID
     Dates: start: 2018
  7. PANCREATIN [Concomitant]
     Active Substance: PANCRELIPASE
     Dosage: 25 000 UNITS, TID
     Dates: start: 2018

REACTIONS (3)
  - Systemic lupus erythematosus [Unknown]
  - Drug ineffective for unapproved indication [Unknown]
  - Off label use [Unknown]

NARRATIVE: CASE EVENT DATE: 2018
